FAERS Safety Report 14605294 (Version 3)
Quarter: 2018Q1

REPORT INFORMATION
  Report Type: Report from Study
  Country: US (occurrence: US)
  Receive Date: 20180306
  Receipt Date: 20180320
  Transmission Date: 20180509
  Serious: Yes (Death, Hospitalization)
  Sender: FDA-Public Use
  Company Number: US-ACTELION-A-NJ2017-163983

PATIENT
  Age: 50 Year
  Sex: Female
  Weight: 78.46 kg

DRUGS (4)
  1. WARFARIN [Concomitant]
     Active Substance: WARFARIN
     Dosage: UNK
  2. VELETRI [Suspect]
     Active Substance: EPOPROSTENOL
     Indication: PULMONARY ARTERIAL HYPERTENSION
     Dosage: 9 NG/KG, PER MIN
     Route: 042
     Dates: start: 201711, end: 20180226
  3. SILDENAFIL. [Concomitant]
     Active Substance: SILDENAFIL
     Indication: PULMONARY ARTERIAL HYPERTENSION
  4. VELETRI [Suspect]
     Active Substance: EPOPROSTENOL
     Dosage: 11 NG/KG, PER MIN
     Route: 042

REACTIONS (9)
  - Dialysis related complication [Unknown]
  - Nausea [Unknown]
  - Respiratory distress [Fatal]
  - Blood calcium increased [Unknown]
  - Fluid overload [Unknown]
  - Ventricular tachycardia [Fatal]
  - Pulmonary oedema [Fatal]
  - Renal failure [Unknown]
  - Cellulitis [Unknown]
